FAERS Safety Report 15436821 (Version 6)
Quarter: 2018Q4

REPORT INFORMATION
  Report Type: Report from Study
  Country: None (occurrence: CA)
  Receive Date: 20180927
  Receipt Date: 20181124
  Transmission Date: 20190204
  Serious: Yes (Hospitalization, Other)
  Sender: FDA-Public Use
  Company Number: CA-ABBVIE-18K-028-2442359-00

PATIENT
  Age: 78 Year
  Sex: Male

DRUGS (2)
  1. HUMIRA [Suspect]
     Active Substance: ADALIMUMAB
     Route: 058
     Dates: start: 20181012, end: 20181109
  2. HUMIRA [Suspect]
     Active Substance: ADALIMUMAB
     Indication: CROHN^S DISEASE
     Route: 058
     Dates: start: 20170106, end: 2018

REACTIONS (14)
  - Abnormal faeces [Unknown]
  - Neoplasm malignant [Recovering/Resolving]
  - Intestinal resection [Recovering/Resolving]
  - Abdominal mass [Not Recovered/Not Resolved]
  - Incision site pain [Recovering/Resolving]
  - Post procedural constipation [Unknown]
  - Muscle spasms [Recovered/Resolved]
  - Asthenia [Not Recovered/Not Resolved]
  - Incision site pruritus [Unknown]
  - Injection site bruising [Recovering/Resolving]
  - Faeces soft [Not Recovered/Not Resolved]
  - Arthralgia [Not Recovered/Not Resolved]
  - General physical health deterioration [Not Recovered/Not Resolved]
  - Diarrhoea [Not Recovered/Not Resolved]

NARRATIVE: CASE EVENT DATE: 2018
